FAERS Safety Report 5103467-9 (Version None)
Quarter: 2006Q3

REPORT INFORMATION
  Report Type: 
  Country: None (occurrence: None)
  Receive Date: 20060913
  Receipt Date: 20060905
  Transmission Date: 20061208
  Serious: Yes (Death, Hospitalization)
  Sender: FDA-Public Use
  Company Number: US-JNJFOC-20060901920

PATIENT
  Age: 86 Year
  Sex: Female

DRUGS (2)
  1. ACETAMINOPHEN [Suspect]
  2. ACETAMINOPHEN [Suspect]
     Indication: DRUG USE FOR UNKNOWN INDICATION
     Dosage: 85-90 TABLETS (STRENGTH UNSPECIFIED)

REACTIONS (8)
  - ACCIDENTAL OVERDOSE [None]
  - ACIDOSIS [None]
  - BLOOD PH DECREASED [None]
  - HAEMODIALYSIS [None]
  - HEPATIC FAILURE [None]
  - HYPOTENSION [None]
  - RENAL FAILURE [None]
  - RESPIRATORY RATE INCREASED [None]
